FAERS Safety Report 7300755-2 (Version None)
Quarter: 2011Q1

REPORT INFORMATION
  Report Type: 
  Country: None (occurrence: None)
  Receive Date: 20110207
  Receipt Date: 20110125
  Transmission Date: 20110831
  Serious: Yes (Other)
  Sender: FDA-Public Use
  Company Number: 2011SP003788

PATIENT
  Age: 16 Year
  Sex: Female

DRUGS (1)
  1. NEXPLANON (ETONOGESTREL) [Suspect]
     Indication: PRODUCT USED FOR UNKNOWN INDICATION
     Dosage: 68 MG, SBDE
     Route: 059
     Dates: start: 20110110

REACTIONS (3)
  - LACERATION [None]
  - COMPLICATION OF DEVICE INSERTION [None]
  - DEVICE FAILURE [None]
